FAERS Safety Report 14980613 (Version 1)
Quarter: 2018Q2

REPORT INFORMATION
  Report Type: Spontaneous
  Country: HR (occurrence: HR)
  Receive Date: 20180606
  Receipt Date: 20180606
  Transmission Date: 20180711
  Serious: Yes (Other)
  Sender: FDA-Public Use
  Company Number: HR-MYLANLABS-2018M1037253

PATIENT
  Age: 52 Year
  Sex: Female

DRUGS (2)
  1. BRUFEN [Suspect]
     Active Substance: IBUPROFEN
     Indication: BACK PAIN
     Dosage: 1200 MG, QD
     Route: 048
     Dates: start: 20170918, end: 20170921
  2. NOLPAZA 20 MG [Concomitant]
     Indication: GASTROOESOPHAGEAL REFLUX DISEASE
     Route: 048
     Dates: start: 20120101

REACTIONS (2)
  - Lip swelling [Recovered/Resolved]
  - Swelling face [Recovered/Resolved]

NARRATIVE: CASE EVENT DATE: 20170920
